FAERS Safety Report 4754226-8 (Version None)
Quarter: 2005Q3

REPORT INFORMATION
  Report Type: 
  Country: None (occurrence: None)
  Receive Date: 20050825
  Receipt Date: 20050825
  Transmission Date: 20060218
  Serious: No
  Sender: FDA-Public Use
  Company Number: None

PATIENT
  Age: 55 Year
  Sex: Male
  Weight: 78 kg

DRUGS (1)
  1. CEFTRIAXONE [Suspect]
     Indication: ARTHRITIS BACTERIAL
     Dosage: 1 GM Q 24 H
     Dates: start: 20050819, end: 20050823

REACTIONS (1)
  - THROMBOCYTHAEMIA [None]
